FAERS Safety Report 6655189-0 (Version None)
Quarter: 2010Q1

REPORT INFORMATION
  Report Type: 
  Country: None (occurrence: None)
  Receive Date: 20100329
  Receipt Date: 20100316
  Transmission Date: 20100710
  Serious: Yes (Hospitalization)
  Sender: FDA-Public Use
  Company Number: US-ELI_LILLY_AND_COMPANY-US201001000339

PATIENT
  Sex: Female

DRUGS (2)
  1. FORTEO [Suspect]
     Indication: OSTEOPOROSIS
     Dosage: 20 UG, DAILY (1/D)
     Dates: start: 20090909
  2. ANALGESICS [Concomitant]
     Indication: BACK PAIN

REACTIONS (4)
  - COMPRESSION FRACTURE [None]
  - GASTRITIS [None]
  - RASH PRURITIC [None]
  - RAYNAUD'S PHENOMENON [None]
